FAERS Safety Report 10625292 (Version 1)
Quarter: 2014Q4

REPORT INFORMATION
  Report Type: Spontaneous
  Country: CH (occurrence: None)
  Receive Date: 20141202
  Receipt Date: 20141202
  Transmission Date: 20150529
  Serious: Yes (Other)
  Sender: FDA-Public Use
  Company Number: 20140743

PATIENT
  Age: 36 Year
  Sex: Female

DRUGS (2)
  1. FERINJECT [Suspect]
     Active Substance: FERRIC CARBOXYMALTOSE
     Indication: IRON DEFICIENCY ANAEMIA
     Dosage: 500 MG (1 IN 1 TOTAL)
     Route: 041
     Dates: start: 20140210, end: 20140210
  2. FERINJECT [Suspect]
     Active Substance: FERRIC CARBOXYMALTOSE
     Indication: FATIGUE
     Dosage: 500 MG (1 IN 1 TOTAL)
     Route: 041
     Dates: start: 20140210, end: 20140210

REACTIONS (6)
  - Shoulder dystocia [None]
  - Arthralgia [None]
  - Maternal drugs affecting foetus [None]
  - Ventricular septal defect [None]
  - Headache [None]
  - Rash [None]

NARRATIVE: CASE EVENT DATE: 201402
